FAERS Safety Report 12706474 (Version 1)
Quarter: 2016Q3

REPORT INFORMATION
  Report Type: Spontaneous
  Country: US (occurrence: US)
  Receive Date: 20160901
  Receipt Date: 20160901
  Transmission Date: 20161109
  Serious: No
  Sender: FDA-Public Use
  Company Number: US-PFIZER INC-2016408815

PATIENT
  Age: 49 Year
  Sex: Female

DRUGS (2)
  1. IBRANCE [Suspect]
     Active Substance: PALBOCICLIB
     Indication: NEOPLASM
     Dosage: 125 MG DAILY ORALLY DAILY FOR 21 DAYS AND THEN 7 DAYS OFF
     Route: 048
  2. FEMARA [Concomitant]
     Active Substance: LETROZOLE
     Dosage: UNK

REACTIONS (2)
  - Neoplasm progression [Not Recovered/Not Resolved]
  - Disease progression [Not Recovered/Not Resolved]
